APPROVED DRUG PRODUCT: MEPERIDINE HYDROCHLORIDE
Active Ingredient: MEPERIDINE HYDROCHLORIDE
Strength: 75MG/ML
Dosage Form/Route: INJECTABLE;INJECTION
Application: A089785 | Product #001
Applicant: IGI LABORATORIES INC
Approved: Mar 31, 1989 | RLD: No | RS: No | Type: DISCN